FAERS Safety Report 20226335 (Version 1)
Quarter: 2021Q4

REPORT INFORMATION
  Report Type: Other
  Country: None (occurrence: US)
  Receive Date: 20211224
  Receipt Date: 20211224
  Transmission Date: 20220303
  Serious: Yes (Life-Threatening, Hospitalization, Other)
  Sender: FDA-Public Use
  Company Number: US-Guardian Drug Company-2123367

PATIENT
  Age: 36 Year
  Sex: Female

DRUGS (1)
  1. CHILDRENS IBUPROFEN [Suspect]
     Active Substance: IBUPROFEN
     Indication: Oropharyngeal pain
     Route: 065

REACTIONS (3)
  - Stevens-Johnson syndrome [Unknown]
  - Intestinal ischaemia [Recovering/Resolving]
  - Respiratory failure [Unknown]
